FAERS Safety Report 21088608 (Version 1)
Quarter: 2022Q3

REPORT INFORMATION
  Report Type: Spontaneous
  Country: US (occurrence: US)
  Receive Date: 20220715
  Receipt Date: 20220715
  Transmission Date: 20221027
  Serious: Yes (Other)
  Sender: FDA-Public Use
  Company Number: US-FreseniusKabi-FK202209791

PATIENT

DRUGS (2)
  1. HEPARIN SODIUM [Suspect]
     Active Substance: HEPARIN SODIUM
     Indication: Acute myocardial infarction
     Dosage: 3000 UNITS IV,  5000 UNITS IV,  2000 UNITS IV ADMINISTERED.
     Route: 042
  2. EFFIENT [Suspect]
     Active Substance: PRASUGREL HYDROCHLORIDE
     Indication: Acute myocardial infarction
     Route: 048

REACTIONS (5)
  - Vascular stent thrombosis [Unknown]
  - Electrocardiogram ST segment elevation [Unknown]
  - Chest pain [Unknown]
  - Dyspnoea [Unknown]
  - Drug ineffective [Unknown]
